FAERS Safety Report 24211324 (Version 1)
Quarter: 2024Q3

REPORT INFORMATION
  Report Type: Spontaneous
  Country: CA (occurrence: CA)
  Receive Date: 20240814
  Receipt Date: 20240814
  Transmission Date: 20241016
  Serious: Yes (Other)
  Sender: SANDOZ
  Company Number: CA-SANDOZ-SDZ2024CA072624

PATIENT
  Age: 27 Year
  Weight: 60 kg

DRUGS (1)
  1. CIPROFLOXACIN\DEXAMETHASONE [Suspect]
     Active Substance: CIPROFLOXACIN\DEXAMETHASONE
     Indication: Ear inflammation
     Dosage: 7.5 ML, BID
     Route: 001

REACTIONS (1)
  - Tinnitus [Not Recovered/Not Resolved]
